FAERS Safety Report 7146649-7 (Version None)
Quarter: 2010Q4

REPORT INFORMATION
  Report Type: 
  Country: None (occurrence: None)
  Receive Date: 20101208
  Receipt Date: 20101129
  Transmission Date: 20110411
  Serious: Yes (Hospitalization)
  Sender: FDA-Public Use
  Company Number: US-ABBOTT-10P-163-0688803-00

PATIENT
  Sex: Female
  Weight: 64.468 kg

DRUGS (4)
  1. HUMIRA [Suspect]
     Indication: SPONDYLOARTHROPATHY
     Dates: start: 20100201, end: 20101101
  2. HUMIRA [Suspect]
     Indication: CROHN'S DISEASE
  3. PREDNISONE [Concomitant]
     Indication: SPONDYLOARTHROPATHY
  4. PREDNISONE [Concomitant]
     Indication: CROHN'S DISEASE

REACTIONS (7)
  - ABDOMINAL DISTENSION [None]
  - ABDOMINAL PAIN [None]
  - HYPOPHAGIA [None]
  - INTESTINAL OBSTRUCTION [None]
  - NAUSEA [None]
  - OROPHARYNGEAL PAIN [None]
  - STOMATITIS [None]
